FAERS Safety Report 12116559 (Version 18)
Quarter: 2017Q4

REPORT INFORMATION
  Report Type: Spontaneous
  Country: US (occurrence: US)
  Receive Date: 20160225
  Receipt Date: 20171218
  Transmission Date: 20180320
  Serious: Yes (Hospitalization)
  Sender: FDA-Public Use
  Company Number: US-ACTELION PHARMACEUTICALS US, INC.-A-US2015-118937

PATIENT
  Age: 47 Year
  Sex: Female
  Weight: 69.84 kg

DRUGS (7)
  1. ADCIRCA [Concomitant]
     Active Substance: TADALAFIL
  2. VELETRI [Suspect]
     Active Substance: EPOPROSTENOL
     Indication: PULMONARY ARTERIAL HYPERTENSION
     Dosage: UNK
     Route: 042
  3. VELETRI [Suspect]
     Active Substance: EPOPROSTENOL
     Dosage: 47 NG/KG, PER MIN
     Route: 042
     Dates: start: 20140805
  4. VELETRI [Suspect]
     Active Substance: EPOPROSTENOL
     Dosage: 45 NG/KG, PER MIN
     Route: 042
     Dates: start: 201705
  5. UPTRAVI [Suspect]
     Active Substance: SELEXIPAG
     Indication: PULMONARY ARTERIAL HYPERTENSION
     Dosage: UNK
     Route: 048
  6. COUMADIN [Concomitant]
     Active Substance: WARFARIN SODIUM
  7. VELETRI [Suspect]
     Active Substance: EPOPROSTENOL
     Dosage: 47.5 NG/KG, PER MIN
     Route: 042

REACTIONS (25)
  - Peripheral swelling [Unknown]
  - Catheter site pain [Unknown]
  - Catheter site haemorrhage [Unknown]
  - Catheter management [Unknown]
  - Blood culture positive [Recovered/Resolved]
  - Pain [Unknown]
  - Fluid overload [Unknown]
  - Gouty arthritis [Unknown]
  - Arthralgia [Unknown]
  - Anxiety [Unknown]
  - Discomfort [Recovering/Resolving]
  - Dyspnoea exertional [Unknown]
  - Headache [Unknown]
  - Palpitations [Unknown]
  - Gastric infection [Unknown]
  - Fluid retention [Unknown]
  - Oedema [Unknown]
  - Musculoskeletal stiffness [Unknown]
  - Chest discomfort [Unknown]
  - Device related sepsis [Recovered/Resolved]
  - Nausea [Unknown]
  - Diarrhoea [Unknown]
  - Dyspnoea [Recovering/Resolving]
  - Staphylococcus test positive [Recovered/Resolved]
  - Oliguria [Unknown]
